FAERS Safety Report 5081999-X (Version None)
Quarter: 2006Q3

REPORT INFORMATION
  Report Type: 
  Country: None (occurrence: None)
  Receive Date: 20060811
  Receipt Date: 20040130
  Transmission Date: 20061208
  Serious: Yes (Other)
  Sender: FDA-Public Use
  Company Number: 2006095286

PATIENT
  Age: 68 Year
  Sex: Male

DRUGS (2)
  1. BEXTRA [Suspect]
     Indication: PAIN IN EXTREMITY
     Dosage: 40 MG (1 IN 1 D, ORAL
     Route: 048
     Dates: start: 20040129
  2. ATENOLOL [Concomitant]

REACTIONS (1)
  - ANURIA [None]
